FAERS Safety Report 7321120-8 (Version None)
Quarter: 2011Q1

REPORT INFORMATION
  Report Type: 
  Country: None (occurrence: None)
  Receive Date: 20110228
  Receipt Date: 20110216
  Transmission Date: 20110831
  Serious: Yes (Hospitalization, Other)
  Sender: FDA-Public Use
  Company Number: US-BAYER-2011-015863

PATIENT
  Sex: Female
  Weight: 159 kg

DRUGS (6)
  1. ALEVE (CAPLET) [Suspect]
     Dosage: 2860 MG, UNK
  2. TAMIFLU [Concomitant]
     Indication: INFLUENZA
  3. FOLIC ACID [Concomitant]
  4. WELLBUTRIN [Concomitant]
  5. BLOOD PRESSURE MEDICATION (NOS) [Concomitant]
  6. METHOTREXATE [Concomitant]

REACTIONS (1)
  - NO ADVERSE EVENT [None]
